FAERS Safety Report 17060253 (Version 2)
Quarter: 2019Q4

REPORT INFORMATION
  Report Type: Spontaneous
  Country: GR (occurrence: GR)
  Receive Date: 20191121
  Receipt Date: 20191225
  Transmission Date: 20200122
  Serious: Yes (Life-Threatening, Hospitalization)
  Sender: FDA-Public Use
  Company Number: GR-B.I. PHARMACEUTICALS,INC./RIDGEFIELD-2019-BI-115237

PATIENT
  Age: 74 Year
  Sex: Male

DRUGS (4)
  1. GLUCOPHAGE [Concomitant]
     Active Substance: METFORMIN HYDROCHLORIDE
     Indication: TYPE 2 DIABETES MELLITUS
     Route: 065
  2. PRADAXA [Suspect]
     Active Substance: DABIGATRAN ETEXILATE MESYLATE
     Indication: ATRIAL FIBRILLATION
  3. PRADAXA [Suspect]
     Active Substance: DABIGATRAN ETEXILATE MESYLATE
     Indication: CEREBROVASCULAR ACCIDENT PROPHYLAXIS
     Route: 048
     Dates: end: 20191118
  4. PRAVALIP [PRAVASTATIN SODIUM] [Concomitant]
     Indication: DYSLIPIDAEMIA
     Route: 065

REACTIONS (2)
  - Haemorrhage intracranial [Not Recovered/Not Resolved]
  - Coma [Not Recovered/Not Resolved]

NARRATIVE: CASE EVENT DATE: 20191118
